FAERS Safety Report 17066040 (Version 2)
Quarter: 2019Q4

REPORT INFORMATION
  Report Type: Spontaneous
  Country: US (occurrence: US)
  Receive Date: 20191122
  Receipt Date: 20191226
  Transmission Date: 20200122
  Serious: No
  Sender: FDA-Public Use
  Company Number: US-CELGENEUS-USA-20191106245

PATIENT
  Sex: Female

DRUGS (1)
  1. OTEZLA [Suspect]
     Active Substance: APREMILAST
     Indication: PSORIASIS
     Dosage: 60 MILLIGRAM
     Route: 048
     Dates: start: 20170502, end: 201910

REACTIONS (5)
  - Cough [Recovered/Resolved]
  - Psoriasis [Recovered/Resolved]
  - Sneezing [Recovered/Resolved]
  - Headache [Unknown]
  - Diarrhoea [Recovered/Resolved]
